FAERS Safety Report 4846520-7 (Version None)
Quarter: 2005Q4

REPORT INFORMATION
  Report Type: 
  Country: None (occurrence: None)
  Receive Date: 20051201
  Receipt Date: 20051121
  Transmission Date: 20060501
  Serious: Yes (Hospitalization, Disabling, Other)
  Sender: FDA-Public Use
  Company Number: 2005157854

PATIENT
  Age: 83 Year
  Sex: Female
  Weight: 42.1845 kg

DRUGS (3)
  1. BEXTRA [Suspect]
     Indication: INFLAMMATION
     Dosage: (1 IN 1 D),
     Dates: start: 20050113
  2. LIPITOR [Concomitant]
  3. PREVACID [Concomitant]

REACTIONS (7)
  - CHOLELITHIASIS [None]
  - DEPRESSED LEVEL OF CONSCIOUSNESS [None]
  - EAR PAIN [None]
  - HYPOACUSIS [None]
  - MIGRAINE [None]
  - NEPHROLITHIASIS [None]
  - TRANSIENT ISCHAEMIC ATTACK [None]
